FAERS Safety Report 17047909 (Version 1)
Quarter: 2019Q4

REPORT INFORMATION
  Report Type: Spontaneous
  Country: CN (occurrence: CN)
  Receive Date: 20191119
  Receipt Date: 20191119
  Transmission Date: 20200122
  Serious: Yes (Hospitalization, Other)
  Sender: FDA-Public Use
  Company Number: CN-JNJFOC-20191111158

PATIENT
  Age: 53 Year
  Sex: Male
  Weight: 92 kg

DRUGS (4)
  1. LORAZEPAM. [Concomitant]
     Active Substance: LORAZEPAM
     Indication: INSOMNIA
     Route: 048
     Dates: start: 20180125, end: 20191107
  2. RISPERDAL [Suspect]
     Active Substance: RISPERIDONE
     Indication: DELUSIONAL DISORDER, UNSPECIFIED TYPE
     Route: 048
     Dates: start: 20150731, end: 20191107
  3. DEPAKINE                           /00228502/ [Concomitant]
     Active Substance: VALPROATE SODIUM
     Indication: EMOTIONAL DISORDER
     Route: 048
     Dates: start: 20180125, end: 20191107
  4. OLANZAPINE. [Concomitant]
     Active Substance: OLANZAPINE
     Indication: DELUSIONAL DISORDER, UNSPECIFIED TYPE
     Route: 048
     Dates: start: 20180605, end: 20191107

REACTIONS (4)
  - Hospitalisation [Unknown]
  - Breast enlargement [Unknown]
  - Breast pain [Unknown]
  - Blood prolactin increased [Unknown]

NARRATIVE: CASE EVENT DATE: 20150902
